FAERS Safety Report 14640435 (Version 1)
Quarter: 2018Q1

REPORT INFORMATION
  Report Type: Spontaneous
  Country: US (occurrence: US)
  Receive Date: 20180315
  Receipt Date: 20180315
  Transmission Date: 20180509
  Serious: No
  Sender: FDA-Public Use
  Company Number: US-PFIZER INC-2018102807

PATIENT
  Age: 72 Year
  Sex: Female
  Weight: 79.38 kg

DRUGS (3)
  1. HYDROCODONE [Concomitant]
     Active Substance: HYDROCODONE
     Indication: PAIN
     Dosage: 5-325 MG TABLETS BY MOUTH EVERY 4 HOURS
     Route: 048
     Dates: start: 201803
  2. LYRICA [Suspect]
     Active Substance: PREGABALIN
     Indication: NEURALGIA
  3. LYRICA [Suspect]
     Active Substance: PREGABALIN
     Indication: HERPES ZOSTER
     Dosage: 75 MG, 2X/DAY
     Route: 048
     Dates: start: 20180308

REACTIONS (3)
  - Drug ineffective [Not Recovered/Not Resolved]
  - Anger [Unknown]
  - Somnolence [Unknown]

NARRATIVE: CASE EVENT DATE: 20180308
